FAERS Safety Report 8533007-3 (Version None)
Quarter: 2012Q3

REPORT INFORMATION
  Report Type: 
  Country: None (occurrence: None)
  Receive Date: 20120711
  Receipt Date: 20120628
  Transmission Date: 20120928
  Serious: Yes (Other)
  Sender: FDA-Public Use
  Company Number: 2010AP002384

PATIENT
  Age: 40 Year
  Sex: Female

DRUGS (1)
  1. RISPERIDONE [Suspect]
     Indication: BIPOLAR DISORDER
     Dosage: 50 MG;UNKNOWN;IM;QOW
     Route: 030

REACTIONS (6)
  - MALAISE [None]
  - MATERNAL EXPOSURE DURING PREGNANCY [None]
  - GRAND MAL CONVULSION [None]
  - DERMATITIS [None]
  - DYSPNOEA [None]
  - FOETAL GROWTH RESTRICTION [None]
